FAERS Safety Report 23100968 (Version 1)
Quarter: 2023Q4

REPORT INFORMATION
  Report Type: Spontaneous
  Country: AU (occurrence: AU)
  Receive Date: 20231024
  Receipt Date: 20231024
  Transmission Date: 20240109
  Serious: Yes (Other)
  Sender: FDA-Public Use
  Company Number: AU-SUNOVION-2023SUN000614

PATIENT

DRUGS (8)
  1. LURASIDONE HYDROCHLORIDE [Suspect]
     Active Substance: LURASIDONE HYDROCHLORIDE
     Indication: Drug abuse
     Dosage: UNK
     Route: 048
  2. LURASIDONE HYDROCHLORIDE [Suspect]
     Active Substance: LURASIDONE HYDROCHLORIDE
     Indication: Major depression
  3. CLONAZEPAM [Suspect]
     Active Substance: CLONAZEPAM
     Indication: Drug abuse
     Dosage: UNK
  4. CLONIDINE [Suspect]
     Active Substance: CLONIDINE
     Indication: Drug abuse
     Dosage: UNK
  5. LAMOTRIGINE [Suspect]
     Active Substance: LAMOTRIGINE
     Indication: Drug abuse
     Dosage: UNK
  6. GALCANEZUMAB [Suspect]
     Active Substance: GALCANEZUMAB
     Indication: Drug abuse
     Dosage: UNK
  7. KETAMINE [Suspect]
     Active Substance: KETAMINE
     Dosage: UNK
     Route: 065
  8. NITROUS OXIDE [Suspect]
     Active Substance: NITROUS OXIDE
     Dosage: UNK
     Route: 065

REACTIONS (8)
  - Drug abuse [Unknown]
  - Suicidal ideation [Recovering/Resolving]
  - Suicide attempt [Unknown]
  - Drug ineffective for unapproved indication [Unknown]
  - Illusion [Unknown]
  - Toxicity to various agents [Unknown]
  - Depressed mood [Recovering/Resolving]
  - Off label use [Unknown]
